FAERS Safety Report 4965076-1 (Version None)
Quarter: 2006Q1

REPORT INFORMATION
  Report Type: 
  Country: None (occurrence: None)
  Receive Date: 20060130
  Receipt Date: 20050915
  Transmission Date: 20060701
  Serious: No
  Sender: FDA-Public Use
  Company Number: COT_0184_2005

PATIENT
  Age: 56 Year
  Sex: Female
  Weight: 66.6788 kg

DRUGS (14)
  1. VENTAVIS [Suspect]
     Indication: PULMONARY HYPERTENSION
     Dosage: 5 MCG 6TO9X/DAY IH
     Route: 055
     Dates: start: 20050714
  2. VENTAVIS [Suspect]
     Indication: PULMONARY HYPERTENSION
     Dosage: 2.5 MCG ONCE IH
     Route: 055
     Dates: start: 20050714, end: 20050714
  3. VYTORIN [Concomitant]
  4. HUMULIN [Concomitant]
  5. HUMULIN N [Concomitant]
  6. ATENOLOL [Concomitant]
  7. ALTACE [Concomitant]
  8. PROTONIX [Concomitant]
  9. SPIRONOLACTONE [Concomitant]
  10. ACTOS [Concomitant]
  11. PLAQUENIL [Concomitant]
  12. MULTIVITAMIN [Concomitant]
  13. VITAMIN E [Concomitant]
  14. COUMADIN [Concomitant]

REACTIONS (4)
  - COUGH [None]
  - ORAL DISCOMFORT [None]
  - PHARYNGOLARYNGEAL PAIN [None]
  - THROAT IRRITATION [None]
